FAERS Safety Report 11778355 (Version 1)
Quarter: 2015Q4

REPORT INFORMATION
  Report Type: Other
  Country: None (occurrence: US)
  Receive Date: 20151125
  Receipt Date: 20151125
  Transmission Date: 20160304
  Serious: Yes (Other)
  Sender: FDA-Public Use
  Company Number: US-METHAPHARM INC.-1044640

PATIENT
  Age: 52 Year
  Sex: Male
  Weight: 90.7 kg

DRUGS (6)
  1. NULOJIX [Suspect]
     Active Substance: BELATACEPT
     Route: 065
  2. HEPARIN [Suspect]
     Active Substance: HEPARIN SODIUM
     Route: 058
  3. CAMPATH [Suspect]
     Active Substance: ALEMTUZUMAB
     Route: 065
  4. TRANEXAMIC ACID. [Suspect]
     Active Substance: TRANEXAMIC ACID
     Indication: HAEMORRHAGE
  5. STERIOD [Suspect]
     Active Substance: UNSPECIFIED INGREDIENT
     Route: 065
  6. CELLCEPT [Suspect]
     Active Substance: MYCOPHENOLATE MOFETIL\MYCOPHENOLATE MOFETIL HYDROCHLORIDE
     Route: 065

REACTIONS (3)
  - Haemolytic anaemia [Unknown]
  - Thrombocytopenia [Recovered/Resolved]
  - Post procedural complication [None]
